FAERS Safety Report 6774949 (Version 7)
Quarter: 2014Q2

REPORT INFORMATION
  Report Type: Report from Study
  Country: FR (occurrence: FR)
  Receive Date: 20080930
  Receipt Date: 20140603
  Transmission Date: 20141212
  Serious: Yes (Hospitalization, Other)
  Sender: FDA-Public Use
  Company Number: FR-JNJFOC-20080904779

PATIENT
  Age: 55 Year
  Sex: Female
  Weight: 117 kg

DRUGS (7)
  1. INFLIXIMAB [Suspect]
     Indication: PSORIASIS
     Route: 042
     Dates: start: 20080630
  2. INFLIXIMAB [Suspect]
     Indication: PSORIASIS
     Route: 042
     Dates: start: 20070611
  3. INFLIXIMAB [Suspect]
     Indication: PSORIASIS
     Route: 042
     Dates: start: 20080107
  4. LUTERAN [Concomitant]
     Indication: MENOPAUSE
     Route: 048
     Dates: start: 1997
  5. HYDROCHLOROTHIAZIDE + BISOPROLOL [Concomitant]
     Indication: HYPERTENSION
     Route: 048
     Dates: start: 1997
  6. SAFORELLE [Concomitant]
     Indication: PSORIASIS
     Route: 003
     Dates: start: 2007
  7. DEXERYL [Concomitant]
     Indication: PSORIASIS
     Route: 003
     Dates: start: 2007

REACTIONS (2)
  - Diverticular perforation [Recovered/Resolved]
  - Adenocarcinoma of colon [Unknown]
